FAERS Safety Report 5410242-4 (Version None)
Quarter: 2007Q3

REPORT INFORMATION
  Report Type: 
  Country: None (occurrence: None)
  Receive Date: 20070808
  Receipt Date: 20070727
  Transmission Date: 20080115
  Serious: Yes (Hospitalization, Other)
  Sender: FDA-Public Use
  Company Number: 237156K06USA

PATIENT

DRUGS (5)
  1. REBIF [Suspect]
     Indication: MULTIPLE SCLEROSIS
     Dosage: 44 MCG, 3 IN 1 WEEKS, SUBCUTANEOUS
     Route: 058
     Dates: start: 20031009, end: 20060808
  2. BACLOFEN [Concomitant]
  3. ZANAFLEX [Concomitant]
  4. EFFEXOR XR [Concomitant]
  5. SOLU-MEDROL [Concomitant]

REACTIONS (1)
  - COMA [None]
